FAERS Safety Report 22141203 (Version 1)
Quarter: 2023Q1

REPORT INFORMATION
  Report Type: Spontaneous
  Country: US (occurrence: None)
  Receive Date: 20230324
  Receipt Date: 20230324
  Transmission Date: 20230418
  Serious: Yes (Life-Threatening)
  Sender: FDA-Public Use
  Company Number: None

PATIENT
  Age: 52 Year
  Sex: Female
  Weight: 62.1 kg

DRUGS (25)
  1. LISINOPRIL [Suspect]
     Active Substance: LISINOPRIL
     Indication: Hypertension
     Dosage: FREQUENCY : DAILY;?
     Route: 048
     Dates: start: 20230228, end: 20230322
  2. LEVOXYL [Concomitant]
     Active Substance: LEVOTHYROXINE SODIUM
  3. generic levothyroxine [Concomitant]
  4. hydrocortisone generic [Concomitant]
  5. MAXALT [Concomitant]
     Active Substance: RIZATRIPTAN BENZOATE
  6. ESTRADIOL [Concomitant]
     Active Substance: ESTRADIOL
  7. XANAX [Concomitant]
     Active Substance: ALPRAZOLAM
  8. PROPRANOLOL [Concomitant]
     Active Substance: PROPRANOLOL HYDROCHLORIDE
  9. POTASSIUM [Concomitant]
     Active Substance: POTASSIUM
  10. VITAMIN D3 [Concomitant]
     Active Substance: CHOLECALCIFEROL
  11. VITAMIN E [Concomitant]
     Active Substance: .ALPHA.-TOCOPHEROL
  12. IRON [Concomitant]
     Active Substance: IRON
  13. bisglycinate [Concomitant]
  14. vitamin K2 (MK7) [Concomitant]
  15. CALCIUM [Concomitant]
     Active Substance: CALCIUM
  16. MAGNESIUM [Concomitant]
     Active Substance: MAGNESIUM
  17. Mag07 [Concomitant]
  18. VITAMIN B1 [Concomitant]
     Active Substance: THIAMINE HYDROCHLORIDE
  19. vitamins b2 [Concomitant]
  20. vitamins b12 [Concomitant]
  21. FOLATE SODIUM [Concomitant]
     Active Substance: FOLATE SODIUM
  22. TAURINE [Concomitant]
     Active Substance: TAURINE
  23. IBUPROFEN [Concomitant]
     Active Substance: IBUPROFEN
  24. TYLENOL [Concomitant]
     Active Substance: ACETAMINOPHEN
  25. BENADRYL [Concomitant]
     Active Substance: DIPHENHYDRAMINE HYDROCHLORIDE

REACTIONS (29)
  - Depression [None]
  - Suicidal ideation [None]
  - Weight increased [None]
  - Irritability [None]
  - Anger [None]
  - Anger [None]
  - Anxiety [None]
  - Feeling abnormal [None]
  - Cognitive disorder [None]
  - Urticaria [None]
  - Balance disorder [None]
  - Pruritus [None]
  - Acne [None]
  - Rash [None]
  - Pain [None]
  - Discomfort [None]
  - Arthralgia [None]
  - Myalgia [None]
  - Muscle strain [None]
  - Photophobia [None]
  - Hyperacusis [None]
  - Cough [None]
  - Fatigue [None]
  - Vision blurred [None]
  - Feeling cold [None]
  - Pain in extremity [None]
  - Pain in extremity [None]
  - Joint injury [None]
  - Muscle injury [None]

NARRATIVE: CASE EVENT DATE: 20230320
